FAERS Safety Report 24190645 (Version 1)
Quarter: 2024Q3

REPORT INFORMATION
  Report Type: Report from Study
  Country: US (occurrence: US)
  Receive Date: 20240808
  Receipt Date: 20240808
  Transmission Date: 20241017
  Serious: Yes (Other)
  Sender: JOHNSON AND JOHNSON
  Company Number: US-JNJFOC-20240778725

PATIENT
  Sex: Male

DRUGS (1)
  1. SIMPONI [Suspect]
     Active Substance: GOLIMUMAB
     Indication: Product used for unknown indication
     Route: 041

REACTIONS (5)
  - Feeling abnormal [Unknown]
  - Illness [Not Recovered/Not Resolved]
  - Bedridden [Unknown]
  - Arthralgia [Unknown]
  - Product dose omission issue [Unknown]
